FAERS Safety Report 7291284-3 (Version None)
Quarter: 2011Q1

REPORT INFORMATION
  Report Type: 
  Country: None (occurrence: None)
  Receive Date: 20110202
  Receipt Date: 20110118
  Transmission Date: 20110831
  Serious: Yes (Other)
  Sender: FDA-Public Use
  Company Number: AUR-APL-2011-00294

PATIENT
  Age: 6 Month
  Sex: Female

DRUGS (7)
  1. SULPHADIAZINE [Concomitant]
  2. STAVUDINE [Suspect]
     Indication: ANTIRETROVIRAL THERAPY
  3. LAMIVUDINE [Suspect]
     Indication: ANTIRETROVIRAL THERAPY
  4. PLUS SUPPLEMENTAL FOLINIC ACID [Concomitant]
  5. LOPINAVIR/RITONAVIR [Suspect]
     Indication: ANTIRETROVIRAL THERAPY
  6. TICE BCG [Suspect]
  7. ORAL PYRIMETHAMINE [Concomitant]

REACTIONS (1)
  - IMMUNE RECONSTITUTION SYNDROME [None]
